FAERS Safety Report 9163337 (Version 6)
Quarter: 2015Q3

REPORT INFORMATION
  Report Type: Spontaneous
  Country: CA (occurrence: CA)
  Receive Date: 20130314
  Receipt Date: 20150910
  Transmission Date: 20151125
  Serious: Yes (Hospitalization, Other)
  Sender: FDA-Public Use
  Company Number: CA-ROCHE-GNE299406

PATIENT
  Age: 60 Year
  Sex: Male
  Weight: 78 kg

DRUGS (11)
  1. SYMBICORT [Concomitant]
     Active Substance: BUDESONIDE\FORMOTEROL FUMARATE DIHYDRATE
  2. XOLAIR [Suspect]
     Active Substance: OMALIZUMAB
     Route: 058
     Dates: start: 20090327
  3. PREDNISONE. [Concomitant]
     Active Substance: PREDNISONE
  4. UNIPHYL [Concomitant]
     Active Substance: THEOPHYLLINE ANHYDROUS
  5. XOLAIR [Suspect]
     Active Substance: OMALIZUMAB
     Route: 058
     Dates: start: 20150512
  6. XOLAIR [Suspect]
     Active Substance: OMALIZUMAB
     Indication: ASTHMA
     Route: 058
     Dates: start: 20090123
  7. ATROVENT [Concomitant]
     Active Substance: IPRATROPIUM BROMIDE
  8. SINGULAIR [Concomitant]
     Active Substance: MONTELUKAST SODIUM
  9. XOLAIR [Suspect]
     Active Substance: OMALIZUMAB
     Route: 058
     Dates: start: 20100305
  10. LEVEMIR [Concomitant]
     Active Substance: INSULIN DETEMIR
  11. LANTUS [Concomitant]
     Active Substance: INSULIN GLARGINE

REACTIONS (12)
  - Viral infection [Unknown]
  - Central nervous system lesion [Unknown]
  - Pneumonia [Unknown]
  - Renal failure [Unknown]
  - Thrombosis [Unknown]
  - Pancreas infection [Unknown]
  - Cardiac disorder [Recovering/Resolving]
  - Cerebral haemorrhage [Recovered/Resolved]
  - Escherichia test positive [Unknown]
  - Weight increased [Unknown]
  - Transient ischaemic attack [Unknown]
  - Cellulitis [Unknown]

NARRATIVE: CASE EVENT DATE: 20150701
